FAERS Safety Report 9576056 (Version 1)
Quarter: 2013Q4

REPORT INFORMATION
  Report Type: Spontaneous
  Country: US (occurrence: US)
  Receive Date: 20131001
  Receipt Date: 20131001
  Transmission Date: 20140711
  Serious: No
  Sender: FDA-Public Use
  Company Number: US-AMGEN-USASP2013000519

PATIENT
  Age: 22 Year
  Sex: Female
  Weight: 77.1 kg

DRUGS (15)
  1. ENBREL [Suspect]
     Indication: RHEUMATOID ARTHRITIS
     Dosage: 50 MG, QWK
     Route: 058
  2. ACCOLATE [Concomitant]
     Dosage: 10 MG, UNK
  3. INDERAL [Concomitant]
     Dosage: 10 MG, UNK
  4. ESTROSTEP FE [Concomitant]
     Dosage: UNK
  5. OXYCODONE WITH APAP [Concomitant]
     Dosage: 10-325 MG
  6. MORPHINE SULFATE [Concomitant]
     Dosage: 15 MG, UNK
  7. PHENERGAN                          /00033001/ [Concomitant]
     Dosage: 25 MG, UNK
  8. BENTYL [Concomitant]
     Dosage: 10 MG, UNK
  9. XANAX [Concomitant]
     Dosage: 0.25 MG, UNK
  10. TRAZODONE [Concomitant]
     Dosage: 100 MG, UNK
  11. VITAMIN D                          /00107901/ [Concomitant]
     Dosage: 1000 UNIT, UNK
  12. TYLENOL                            /00020001/ [Concomitant]
     Dosage: 500 MG, UNK
  13. MOTRIN IB [Concomitant]
     Dosage: 200 MG, UNK
  14. XOPENEX [Concomitant]
     Dosage: 1.25/3 ML
  15. ALBUTEROL                          /00139501/ [Concomitant]
     Dosage: 90 MUG, UNK

REACTIONS (3)
  - Pain [Unknown]
  - Sinus congestion [Unknown]
  - Sensation of foreign body [Unknown]
